FAERS Safety Report 8548241-6 (Version None)
Quarter: 2012Q3

REPORT INFORMATION
  Report Type: 
  Country: None (occurrence: None)
  Receive Date: 20120730
  Receipt Date: 20120723
  Transmission Date: 20120928
  Serious: Yes (Hospitalization, Other)
  Sender: FDA-Public Use
  Company Number: US-009507513-1207USA010556

PATIENT

DRUGS (2)
  1. CORDARONE [Suspect]
     Dosage: 200 MG, QD
     Route: 048
  2. ZOCOR [Suspect]
     Route: 048

REACTIONS (2)
  - PULMONARY ARTERIAL HYPERTENSION [None]
  - INTERSTITIAL LUNG DISEASE [None]
